FAERS Safety Report 16530324 (Version 2)
Quarter: 2020Q2

REPORT INFORMATION
  Report Type: Spontaneous
  Country: US (occurrence: US)
  Receive Date: 20190704
  Receipt Date: 20200624
  Transmission Date: 20200713
  Serious: Yes (Hospitalization, Other)
  Sender: FDA-Public Use
  Company Number: US-SUN PHARMACEUTICAL INDUSTRIES LTD-2019R1-212633

PATIENT
  Age: 8 Year
  Sex: Female

DRUGS (1)
  1. ERGOCALCIFEROL. [Suspect]
     Active Substance: ERGOCALCIFEROL
     Indication: VITAMIN D DEFICIENCY
     Dosage: 5000 UNITS, DAILY
     Route: 065
     Dates: start: 2010

REACTIONS (6)
  - Toxicity to various agents [Recovering/Resolving]
  - Electrolyte imbalance [Unknown]
  - Fatigue [Unknown]
  - Medication error [Unknown]
  - Cardiac failure [Unknown]
  - Hypercalcaemia [Recovering/Resolving]
